FAERS Safety Report 10024246 (Version 1)
Quarter: 2014Q1

REPORT INFORMATION
  Report Type: Spontaneous
  Country: US (occurrence: US)
  Receive Date: 20140320
  Receipt Date: 20140320
  Transmission Date: 20141002
  Serious: No
  Sender: FDA-Public Use
  Company Number: US-JNJFOC-20140309979

PATIENT
  Sex: Male

DRUGS (6)
  1. INVEGA SUSTENNA [Suspect]
     Indication: PRODUCT USED FOR UNKNOWN INDICATION
     Dosage: 2-20
     Route: 030
     Dates: start: 20140220
  2. INVEGA SUSTENNA [Suspect]
     Indication: PRODUCT USED FOR UNKNOWN INDICATION
     Dosage: 2-6
     Route: 030
     Dates: start: 20140206
  3. OLANZAPINE [Concomitant]
     Route: 065
  4. LITHIUM [Concomitant]
     Route: 065
  5. LORAZEPAM [Concomitant]
     Route: 065
  6. FLUOXETINE [Concomitant]
     Route: 065

REACTIONS (3)
  - Somnambulism [Unknown]
  - Urinary incontinence [Unknown]
  - Drooling [Unknown]
